FAERS Safety Report 4263621-5 (Version None)
Quarter: 2004Q1

REPORT INFORMATION
  Report Type: 
  Country: None (occurrence: None)
  Receive Date: 20040102
  Receipt Date: 20031212
  Transmission Date: 20041129
  Serious: Yes (Other)
  Sender: FDA-Public Use
  Company Number: CEL-2003-04288-ROC

PATIENT

DRUGS (1)
  1. ZAROXOLYN [Suspect]

REACTIONS (1)
  - HEPATITIS [None]
